FAERS Safety Report 13849975 (Version 1)
Quarter: 2017Q3

REPORT INFORMATION
  Report Type: Spontaneous
  Country: ES (occurrence: ES)
  Receive Date: 20170809
  Receipt Date: 20170809
  Transmission Date: 20171127
  Serious: Yes (Other)
  Sender: FDA-Public Use
  Company Number: ES-CELGENEUS-ESP-2017038470

PATIENT

DRUGS (1)
  1. REVLIMID [Suspect]
     Active Substance: LENALIDOMIDE
     Indication: MYELODYSPLASTIC SYNDROME
     Dosage: 5 MILLIGRAM
     Route: 048

REACTIONS (11)
  - Neuritis [Unknown]
  - Chronic obstructive pulmonary disease [Unknown]
  - Toxicity to various agents [Unknown]
  - Arthritis [Unknown]
  - Hypertension [Unknown]
  - Respiratory tract infection [Unknown]
  - Myelodysplastic syndrome [Unknown]
  - Neutropenia [Unknown]
  - Haematotoxicity [Unknown]
  - Polyarthritis [Unknown]
  - Cardiac failure congestive [Unknown]
